FAERS Safety Report 9147370 (Version 1)
Quarter: 2013Q1

REPORT INFORMATION
  Report Type: Spontaneous
  Country: US (occurrence: US)
  Receive Date: 20130307
  Receipt Date: 20130307
  Transmission Date: 20140127
  Serious: Yes (Other)
  Sender: FDA-Public Use
  Company Number: US-PFIZER INC-2013078604

PATIENT
  Sex: Female

DRUGS (2)
  1. NEURONTIN [Suspect]
     Indication: BACK PAIN
     Dosage: 300 MG, 2X/DAY
     Route: 048
     Dates: start: 201301, end: 2013
  2. LIDODERM [Concomitant]
     Dosage: UNK

REACTIONS (2)
  - Osteochondrosis [Unknown]
  - Drug ineffective [Unknown]
